FAERS Safety Report 5600498-7 (Version None)
Quarter: 2008Q1

REPORT INFORMATION
  Report Type: 
  Country: None (occurrence: None)
  Receive Date: 20080123
  Receipt Date: 20080114
  Transmission Date: 20080703
  Serious: Yes (Hospitalization)
  Sender: FDA-Public Use
  Company Number: FR-ELI_LILLY_AND_COMPANY-FR200801002526

PATIENT
  Sex: Female

DRUGS (10)
  1. HUMULIN N [Suspect]
     Dosage: 20 IU, DAILY (1/D)
     Route: 058
  2. SOTALOL HCL [Concomitant]
     Dosage: 80 MG, 2/D
     Route: 048
  3. DURAGESIC-100 [Concomitant]
     Dosage: 0.333 D/F, DAILY (1/D)
  4. RAMIPRIL [Concomitant]
     Dosage: 5 MG, DAILY (1/D)
     Route: 048
  5. VASTAREL [Concomitant]
     Dosage: 2 D/F, DAILY (1/D)
     Route: 048
  6. FOSAVANCE [Concomitant]
     Dosage: 70 MG, WEEKLY (1/W)
     Route: 048
  7. OMEPRAZOLE [Concomitant]
     Dosage: 20 MG, DAILY (1/D)
  8. ESCITALOPRAM [Concomitant]
     Dosage: 1 D/F, DAILY (1/D)
     Route: 048
  9. IMOVANE [Concomitant]
     Dosage: 7.5 MG, DAILY (1/D)
     Route: 048
  10. MELAXOSE [Concomitant]
     Dosage: 1 D/F, DAILY (1/D)

REACTIONS (2)
  - HYPOGLYCAEMIA [None]
  - HYPOTHERMIA [None]
